FAERS Safety Report 6779070-1 (Version None)
Quarter: 2010Q2

REPORT INFORMATION
  Report Type: 
  Country: None (occurrence: None)
  Receive Date: 20100618
  Receipt Date: 20100608
  Transmission Date: 20101027
  Serious: Yes (Other)
  Sender: FDA-Public Use
  Company Number: TH-PFIZER INC-2010071879

PATIENT
  Age: 35 Year
  Sex: Female

DRUGS (1)
  1. DALACIN [Suspect]
     Indication: ACNE
     Dosage: 300 MG, 3X/DAY
     Route: 048
     Dates: start: 20100605, end: 20100606

REACTIONS (3)
  - EYE SWELLING [None]
  - RASH ERYTHEMATOUS [None]
  - SWELLING FACE [None]
